FAERS Safety Report 8880260 (Version 4)
Quarter: 2012Q4

REPORT INFORMATION
  Report Type: 
  Country: JP (occurrence: JP)
  Receive Date: 20121031
  Receipt Date: 20121122
  Transmission Date: 20130627
  Serious: Yes (Hospitalization)
  Sender: FDA-Public Use
  Company Number: JP-MERCK-1210JPN013282

PATIENT
  Age: 84 Year
  Sex: Male

DRUGS (12)
  1. GLACTIV [Suspect]
     Indication: TYPE 2 DIABETES MELLITUS
     Dosage: 50 mg, qd
     Route: 048
     Dates: start: 20120828
  2. AMARYL [Concomitant]
  3. METGLUCO [Concomitant]
     Dosage: UNK
     Dates: end: 20120709
  4. MICARDIS [Concomitant]
  5. CONIEL [Concomitant]
  6. BASEN OD [Concomitant]
  7. LENDORMIN [Concomitant]
     Dosage: UNK
     Dates: end: 20120827
  8. MARZULENE-S [Concomitant]
  9. PANTOSIN [Concomitant]
  10. MAGNESIUM OXIDE [Concomitant]
  11. LOXONIN [Concomitant]
  12. LENDORMIN D [Concomitant]
     Dosage: UNK
     Dates: start: 20120828

REACTIONS (1)
  - Hyponatraemia [Recovered/Resolved]
